FAERS Safety Report 13054263 (Version 2)
Quarter: 2018Q1

REPORT INFORMATION
  Report Type: Report from Study
  Country: BE (occurrence: BE)
  Receive Date: 20161222
  Receipt Date: 20180226
  Transmission Date: 20180508
  Serious: Yes (Death, Hospitalization)
  Sender: FDA-Public Use
  Company Number: BE-PFIZER INC-2016585163

PATIENT
  Age: 75 Year
  Sex: Female
  Weight: 55.8 kg

DRUGS (4)
  1. ASAFLOW [Concomitant]
     Active Substance: ASPIRIN
     Dosage: UNK
     Dates: start: 20140601
  2. DOXORUBICIN HCL [Suspect]
     Active Substance: DOXORUBICIN HYDROCHLORIDE
     Indication: SOFT TISSUE SARCOMA
     Dosage: 117.5 MG, DAY 1 OF A 21 DAY CYCLE
     Route: 042
     Dates: start: 20160325
  3. DEXRAZOXANE. [Suspect]
     Active Substance: DEXRAZOXANE
     Indication: PREMEDICATION
     Dosage: UNK
     Route: 042
     Dates: start: 20160325
  4. BLINDED THERAPY [Suspect]
     Active Substance: INVESTIGATIONAL PRODUCT
     Indication: SOFT TISSUE SARCOMA
     Dosage: DAY 1 AND 8 OF 21 DAY CYCLE
     Route: 042
     Dates: start: 20160325

REACTIONS (1)
  - Pneumonia [Recovered/Resolved]

NARRATIVE: CASE EVENT DATE: 20160826
